FAERS Safety Report 9774737 (Version 2)
Quarter: 2014Q2

REPORT INFORMATION
  Report Type: Spontaneous
  Country: JP (occurrence: JP)
  Receive Date: 20131220
  Receipt Date: 20140404
  Transmission Date: 20141212
  Serious: Yes (Death, Hospitalization, Other)
  Sender: FDA-Public Use
  Company Number: JP-ELI_LILLY_AND_COMPANY-JP201312006448

PATIENT
  Age: 60 Year
  Sex: Male
  Weight: 74 kg

DRUGS (5)
  1. ALIMTA [Suspect]
     Indication: LUNG ADENOCARCINOMA STAGE IV
     Dosage: 940 MG, UNK
     Route: 042
     Dates: start: 20100129, end: 20100422
  2. PARAPLATIN [Suspect]
     Indication: LUNG ADENOCARCINOMA STAGE IV
     Dosage: 710 MG, UNK
     Route: 042
     Dates: start: 20100129, end: 20100401
  3. PANVITAN [Concomitant]
     Indication: PROPHYLAXIS
     Dosage: 1 G, UNK
     Route: 048
     Dates: start: 20100113, end: 20100510
  4. FRESMIN S [Concomitant]
     Indication: PROPHYLAXIS
     Dosage: 1 MG, UNK
     Route: 030
  5. ZOMETA [Concomitant]
     Indication: METASTASES TO BONE
     Dosage: 4 MG, UNK
     Route: 042
     Dates: start: 20100212

REACTIONS (2)
  - Interstitial lung disease [Fatal]
  - Metastases to lung [Unknown]
